FAERS Safety Report 4606356-9 (Version None)
Quarter: 2005Q2

REPORT INFORMATION
  Report Type: 
  Country: None (occurrence: None)
  Receive Date: 20050223
  Receipt Date: 20041122
  Transmission Date: 20051028
  Serious: Yes (Other)
  Sender: FDA-Public Use
  Company Number: WAES 0411USA03488

PATIENT
  Age: 57 Year
  Sex: Female

DRUGS (5)
  1. ZOCOR [Suspect]
     Dosage: PO
     Route: 048
     Dates: end: 20040706
  2. TRACLEER [Suspect]
     Indication: PULMONARY EMBOLISM
     Dosage: SEE IMAGE
     Route: 048
     Dates: start: 20040217, end: 20040318
  3. TRACLEER [Suspect]
     Indication: PULMONARY EMBOLISM
     Dosage: SEE IMAGE
     Route: 048
     Dates: start: 20040319, end: 20040706
  4. TRACLEER [Suspect]
     Indication: PULMONARY EMBOLISM
     Dosage: SEE IMAGE
     Route: 048
     Dates: start: 20040721, end: 20040809
  5. COUMADIN [Concomitant]

REACTIONS (4)
  - ALANINE AMINOTRANSFERASE INCREASED [None]
  - ASPARTATE AMINOTRANSFERASE INCREASED [None]
  - BLOOD ALKALINE PHOSPHATASE INCREASED [None]
  - HEPATIC ENZYME INCREASED [None]
